FAERS Safety Report 5937710-0 (Version None)
Quarter: 2008Q4

REPORT INFORMATION
  Report Type: 
  Country: None (occurrence: None)
  Receive Date: 20081031
  Receipt Date: 20081024
  Transmission Date: 20090506
  Serious: Yes (Death)
  Sender: FDA-Public Use
  Company Number: FR-MERCK-0810FRA00082

PATIENT
  Age: 69 Year
  Sex: Male

DRUGS (2)
  1. PRIMAXIN [Suspect]
     Indication: INFECTION
     Route: 042
     Dates: start: 20080725, end: 20080725
  2. POTASSIUM CHLORIDE [Suspect]
     Indication: HYPOKALAEMIA
     Route: 042
     Dates: start: 20080725, end: 20080725

REACTIONS (1)
  - DRUG ADMINISTRATION ERROR [None]
